FAERS Safety Report 17129054 (Version 4)
Quarter: 2020Q3

REPORT INFORMATION
  Report Type: Report from Study
  Country: BR (occurrence: BR)
  Receive Date: 20191209
  Receipt Date: 20200930
  Transmission Date: 20201102
  Serious: Yes (Other)
  Sender: FDA-Public Use
  Company Number: NVSC2019BR057667

PATIENT
  Age: 56 Year
  Sex: Male

DRUGS (9)
  1. COSENTYX [Suspect]
     Active Substance: SECUKINUMAB
     Dosage: UNK
     Route: 065
     Dates: start: 201909
  2. COSENTYX [Suspect]
     Active Substance: SECUKINUMAB
     Dosage: UNK
     Route: 065
     Dates: start: 20190805
  3. ETANERCEPT [Suspect]
     Active Substance: ETANERCEPT
     Indication: PRODUCT USED FOR UNKNOWN INDICATION
     Dosage: UNK, UNKNOWN
     Route: 065
  4. COSENTYX [Suspect]
     Active Substance: SECUKINUMAB
     Dosage: UNK
     Route: 065
     Dates: start: 20190812
  5. COSENTYX [Suspect]
     Active Substance: SECUKINUMAB
     Dosage: UNK
     Route: 065
     Dates: start: 20191212
  6. COSENTYX [Suspect]
     Active Substance: SECUKINUMAB
     Dosage: UNK
     Route: 065
     Dates: start: 20190912
  7. COSENTYX [Suspect]
     Active Substance: SECUKINUMAB
     Indication: PSORIATIC ARTHROPATHY
     Dosage: 150 MG, UNKNOWN (2 APPLICATIONS)
     Route: 058
     Dates: start: 20190715
  8. COSENTYX [Suspect]
     Active Substance: SECUKINUMAB
     Dosage: UNK
     Route: 065
     Dates: start: 20190722
  9. COSENTYX [Suspect]
     Active Substance: SECUKINUMAB
     Dosage: UNK
     Route: 065
     Dates: start: 20190729

REACTIONS (20)
  - Skin laceration [Recovered/Resolved]
  - Pain [Recovered/Resolved]
  - Hypothermia [Recovered/Resolved]
  - Decreased immune responsiveness [Recovered/Resolved]
  - Limb injury [Recovered/Resolved]
  - Arthralgia [Not Recovered/Not Resolved]
  - Limb injury [Recovered/Resolved]
  - Infection [Unknown]
  - Erysipelas [Recovering/Resolving]
  - Localised infection [Recovered/Resolved]
  - Peripheral swelling [Unknown]
  - Peripheral venous disease [Unknown]
  - Impaired healing [Recovering/Resolving]
  - Psoriatic arthropathy [Not Recovered/Not Resolved]
  - Skin disorder [Not Recovered/Not Resolved]
  - Infection [Recovered/Resolved]
  - Bacterial infection [Recovered/Resolved]
  - Red blood cell sedimentation rate [Unknown]
  - C-reactive protein increased [Unknown]
  - Gastrointestinal disorder [Recovered/Resolved]

NARRATIVE: CASE EVENT DATE: 201910
